FAERS Safety Report 9702131 (Version 3)
Quarter: 2014Q2

REPORT INFORMATION
  Report Type: Spontaneous
  Country: US (occurrence: None)
  Receive Date: 20131119
  Receipt Date: 20140516
  Transmission Date: 20141212
  Serious: Yes (Hospitalization)
  Sender: FDA-Public Use
  Company Number: 2009196

PATIENT
  Age: 49 Year
  Sex: Female
  Weight: 127.46 kg

DRUGS (1)
  1. BUPIVACAINE HCL [Suspect]
     Indication: PAIN
     Route: 050
     Dates: start: 20131029

REACTIONS (3)
  - Staphylococcal infection [None]
  - Pain [None]
  - Arthritis bacterial [None]
